FAERS Safety Report 10906184 (Version 1)
Quarter: 2015Q1

REPORT INFORMATION
  Report Type: Report from Study
  Country: JP (occurrence: US)
  Receive Date: 20150311
  Receipt Date: 20150311
  Transmission Date: 20150721
  Serious: Yes (Death, Hospitalization, Other)
  Sender: FDA-Public Use
  Company Number: US-CELGENEUS-087-50794-14084431

PATIENT
  Age: 70 Year
  Sex: Male
  Weight: 63 kg

DRUGS (19)
  1. VIDAZA [Suspect]
     Active Substance: AZACITIDINE
     Route: 065
     Dates: start: 20120305, end: 20120309
  2. VIDAZA [Suspect]
     Active Substance: AZACITIDINE
     Route: 065
     Dates: start: 20111011, end: 20111015
  3. VIDAZA [Suspect]
     Active Substance: AZACITIDINE
     Indication: MYELODYSPLASTIC SYNDROME
     Route: 058
     Dates: start: 20110906, end: 20110910
  4. VIDAZA [Suspect]
     Active Substance: AZACITIDINE
     Route: 065
     Dates: start: 20120110, end: 20120114
  5. FAMOTIDINE D [Concomitant]
     Active Substance: FAMOTIDINE
     Indication: PRODUCT USED FOR UNKNOWN INDICATION
     Route: 065
  6. BIO-THREE [Concomitant]
     Active Substance: HERBALS
     Indication: PRODUCT USED FOR UNKNOWN INDICATION
     Route: 065
     Dates: end: 20121012
  7. VIDAZA [Suspect]
     Active Substance: AZACITIDINE
     Route: 065
     Dates: start: 20120206, end: 20120210
  8. VIDAZA [Suspect]
     Active Substance: AZACITIDINE
     Route: 065
     Dates: start: 20121126, end: 20121130
  9. CIFROQUINON [Concomitant]
     Active Substance: CIPROFLOXACIN
     Indication: PRODUCT USED FOR UNKNOWN INDICATION
     Route: 065
     Dates: end: 20111012
  10. VIDAZA [Suspect]
     Active Substance: AZACITIDINE
     Route: 065
     Dates: start: 20111107, end: 20111111
  11. VIDAZA [Suspect]
     Active Substance: AZACITIDINE
     Route: 065
     Dates: start: 20120402, end: 20120406
  12. VIDAZA [Suspect]
     Active Substance: AZACITIDINE
     Route: 065
     Dates: start: 20120604, end: 20120608
  13. VIDAZA [Suspect]
     Active Substance: AZACITIDINE
     Route: 058
     Dates: start: 20120806, end: 20120810
  14. CIFROQUINON [Concomitant]
     Active Substance: CIPROFLOXACIN
     Route: 065
     Dates: start: 20121010, end: 20121026
  15. ITRIZOLE [Concomitant]
     Active Substance: ITRACONAZOLE
     Indication: PRODUCT USED FOR UNKNOWN INDICATION
     Route: 065
  16. VIDAZA [Suspect]
     Active Substance: AZACITIDINE
     Route: 065
     Dates: start: 20111205, end: 20111209
  17. VIDAZA [Suspect]
     Active Substance: AZACITIDINE
     Route: 065
     Dates: start: 20120507, end: 20120511
  18. VIDAZA [Suspect]
     Active Substance: AZACITIDINE
     Route: 058
     Dates: start: 20120702, end: 20120706
  19. VIDAZA [Suspect]
     Active Substance: AZACITIDINE
     Route: 065
     Dates: start: 20121022, end: 20121026

REACTIONS (9)
  - Gamma-glutamyltransferase increased [Recovered/Resolved]
  - Platelet count decreased [Not Recovered/Not Resolved]
  - Blast cell count increased [Recovered/Resolved]
  - Myelodysplastic syndrome [Fatal]
  - Leukocytosis [Recovered/Resolved]
  - Blast cell count increased [Recovered/Resolved]
  - Blood lactate dehydrogenase increased [Recovered/Resolved]
  - Leukocytosis [Recovering/Resolving]
  - Leukocytosis [Recovered/Resolved]

NARRATIVE: CASE EVENT DATE: 20110912
